FAERS Safety Report 5345896-4 (Version None)
Quarter: 2007Q2

REPORT INFORMATION
  Report Type: 
  Country: None (occurrence: None)
  Receive Date: 20070605
  Receipt Date: 20070530
  Transmission Date: 20071010
  Serious: Yes (Other)
  Sender: FDA-Public Use
  Company Number: A0648696A

PATIENT
  Age: 41 Year
  Sex: Female
  Weight: 58.6 kg

DRUGS (7)
  1. TYKERB [Suspect]
     Indication: BREAST CANCER
     Dosage: 2TAB PER DAY
     Route: 048
     Dates: start: 20070419, end: 20070425
  2. KLONOPIN [Concomitant]
  3. ANAFRANIL [Concomitant]
  4. XELODA [Concomitant]
  5. NEFAZODONE HCL [Concomitant]
  6. UNSPECIFIED MEDICATION [Concomitant]
  7. WARFARIN SODIUM [Concomitant]

REACTIONS (2)
  - HAEMATOCHEZIA [None]
  - VAGINAL HAEMORRHAGE [None]
